FAERS Safety Report 23366492 (Version 1)
Quarter: 2024Q1

REPORT INFORMATION
  Report Type: Spontaneous
  Country: CN (occurrence: CN)
  Receive Date: 20240104
  Receipt Date: 20240104
  Transmission Date: 20240409
  Serious: Yes (Other)
  Sender: FDA-Public Use
  Company Number: CN-PFIZER INC-PV202300207735

PATIENT
  Age: 40 Year
  Sex: Male
  Weight: 60 kg

DRUGS (8)
  1. EPIRUBICIN HYDROCHLORIDE [Suspect]
     Active Substance: EPIRUBICIN HYDROCHLORIDE
     Indication: Bone cancer
     Dosage: 60 MG, 1X/DAY
     Route: 041
     Dates: start: 20230427, end: 20230427
  2. EPIRUBICIN HYDROCHLORIDE [Suspect]
     Active Substance: EPIRUBICIN HYDROCHLORIDE
     Dosage: 70 MG, 1X/DAY
     Route: 041
     Dates: start: 20230427, end: 20230427
  3. PACLITAXEL [Suspect]
     Active Substance: PACLITAXEL
     Indication: Bone cancer
     Dosage: 400 MG, 1X/DAY
     Route: 041
     Dates: start: 20230427, end: 20230427
  4. SODIUM CHLORIDE [Concomitant]
     Active Substance: SODIUM CHLORIDE
     Indication: Vehicle solution use
     Dosage: 100 ML, 1X/DAY
     Route: 041
     Dates: start: 20230427, end: 20230427
  5. SODIUM CHLORIDE [Concomitant]
     Active Substance: SODIUM CHLORIDE
     Dosage: 100 ML, 1X/DAY
     Route: 041
     Dates: start: 20230427, end: 20230427
  6. SODIUM CHLORIDE [Concomitant]
     Active Substance: SODIUM CHLORIDE
     Dosage: 100 ML, 1X/DAY
     Route: 041
     Dates: start: 20230427, end: 20230427
  7. PHOSPHOLIPID [Concomitant]
     Active Substance: PHOSPHOLIPID
     Indication: Prophylaxis
     Dosage: 250 ML, 1X/DAY
     Route: 041
     Dates: start: 20230427
  8. PHOSPHOLIPID [Concomitant]
     Active Substance: PHOSPHOLIPID
     Dosage: 250 ML, 1X/DAY
     Route: 041
     Dates: start: 20230518

REACTIONS (1)
  - Transaminases increased [Recovering/Resolving]

NARRATIVE: CASE EVENT DATE: 20230516
